FAERS Safety Report 4692370-4 (Version None)
Quarter: 2005Q2

REPORT INFORMATION
  Report Type: 
  Country: None (occurrence: None)
  Receive Date: 20050616
  Receipt Date: 20050527
  Transmission Date: 20051028
  Serious: Yes (Hospitalization, Other)
  Sender: FDA-Public Use
  Company Number: EWC050443629

PATIENT
  Age: 73 Year
  Sex: Female
  Weight: 61 kg

DRUGS (5)
  1. ALIMTA [Suspect]
     Indication: MESOTHELIOMA
     Dosage: 825 MG/1 OTHER
     Route: 050
     Dates: start: 20040829, end: 20041010
  2. CISPLATIN [Suspect]
     Indication: MESOTHELIOMA
     Dosage: 120 MG/1 OTHER
     Route: 050
     Dates: start: 20040829, end: 20041010
  3. FOLIC ACID [Concomitant]
  4. VITAMIN B-12 [Concomitant]
  5. DEXAMETHASONE [Concomitant]

REACTIONS (10)
  - ANAEMIA [None]
  - BLOOD CREATINE INCREASED [None]
  - CREATININE RENAL CLEARANCE DECREASED [None]
  - DEHYDRATION [None]
  - DRUG TOXICITY [None]
  - LEUKOPENIA [None]
  - NAUSEA [None]
  - NEUTROPENIA [None]
  - THROMBOCYTOPENIA [None]
  - VOMITING [None]
